FAERS Safety Report 25242163 (Version 6)
Quarter: 2025Q2

REPORT INFORMATION
  Report Type: Report from Study
  Country: CA (occurrence: CA)
  Receive Date: 20250426
  Receipt Date: 20250611
  Transmission Date: 20250716
  Serious: Yes (Other)
  Sender: NOVARTIS
  Company Number: CA-002147023-NVSC2025CA001927

PATIENT
  Age: 35 Year
  Sex: Female

DRUGS (6)
  1. COSENTYX [Suspect]
     Active Substance: SECUKINUMAB
     Indication: Ankylosing spondylitis
     Dosage: 150 MG, QW (WEEKS 0,1, 2, 3,AND 4)
     Route: 058
     Dates: start: 20241225
  2. COSENTYX [Suspect]
     Active Substance: SECUKINUMAB
     Route: 065
  3. COSENTYX [Suspect]
     Active Substance: SECUKINUMAB
     Dosage: 150 MG, QMO
     Route: 058
  4. COSENTYX [Suspect]
     Active Substance: SECUKINUMAB
     Route: 058
     Dates: start: 20250322
  5. COSENTYX [Suspect]
     Active Substance: SECUKINUMAB
     Route: 058
     Dates: start: 20250419
  6. COSENTYX [Suspect]
     Active Substance: SECUKINUMAB
     Dosage: 150 MG, QMO
     Route: 058

REACTIONS (28)
  - Pneumonia [Unknown]
  - Ankylosing spondylitis [Unknown]
  - Condition aggravated [Unknown]
  - Nausea [Unknown]
  - Fatigue [Unknown]
  - Dizziness [Unknown]
  - Pain [Unknown]
  - Feeling abnormal [Unknown]
  - Middle insomnia [Unknown]
  - Night sweats [Unknown]
  - Hyperhidrosis [Unknown]
  - Pyrexia [Unknown]
  - Blood pressure decreased [Unknown]
  - Tremor [Unknown]
  - Fine motor skill dysfunction [Unknown]
  - Diarrhoea [Unknown]
  - Decreased appetite [Unknown]
  - Abdominal pain [Unknown]
  - Chest pain [Not Recovered/Not Resolved]
  - Cough [Recovering/Resolving]
  - Dysstasia [Unknown]
  - Muscle strength abnormal [Unknown]
  - Discouragement [Unknown]
  - Candida infection [Not Recovered/Not Resolved]
  - Skin fissures [Unknown]
  - Musculoskeletal stiffness [Unknown]
  - Nasal congestion [Unknown]
  - Blood pressure increased [Unknown]

NARRATIVE: CASE EVENT DATE: 20250416
